FAERS Safety Report 8610006-4 (Version None)
Quarter: 2012Q3

REPORT INFORMATION
  Report Type: 
  Country: None (occurrence: None)
  Receive Date: 20120822
  Receipt Date: 20120718
  Transmission Date: 20120928
  Serious: Yes (Hospitalization, Other)
  Sender: FDA-Public Use
  Company Number: US-009507513-1109USA03246

PATIENT

DRUGS (19)
  1. LEVOTIROXINA S.O [Concomitant]
     Dates: start: 20050501, end: 20061101
  2. FOSAMAX [Suspect]
     Indication: OSTEOPENIA
     Dosage: 70 MG, UNK
     Route: 048
     Dates: start: 20011106, end: 20060420
  3. FOSAMAX PLUS D [Suspect]
     Indication: OSTEOPENIA
  4. CYTOMEL [Concomitant]
     Dates: start: 20011001
  5. SYNTHROID [Concomitant]
     Dates: start: 20050501, end: 20061101
  6. PIROXICAM [Concomitant]
     Indication: PAIN
  7. FOSAMAX [Suspect]
     Dosage: 70 MG, UNK
     Route: 048
     Dates: start: 20090925, end: 20091219
  8. FOSAMAX PLUS D [Suspect]
     Dosage: 70/2800
     Route: 048
     Dates: start: 20060421, end: 20090924
  9. CYTOMEL [Concomitant]
     Indication: HYPOTHYROIDISM
  10. SYNTHROID [Concomitant]
     Indication: HYPOTHYROIDISM
  11. ELAVIL [Concomitant]
     Dates: start: 20010701
  12. PIROXICAM [Concomitant]
     Dates: start: 20050501, end: 20070201
  13. CALCIUM (UNSPECIFIED) [Concomitant]
  14. ELAVIL [Concomitant]
     Indication: PAIN
  15. VITAMIN D [Concomitant]
  16. OMEGA-3-ACID ETHYL ESTERS [Concomitant]
  17. VITAMIN B (UNSPECIFIED) [Concomitant]
  18. LEVOTIROXINA S.O [Concomitant]
     Indication: HYPOTHYROIDISM
  19. FOSAMAX [Suspect]
     Dosage: 70 MG, UNK
     Route: 048
     Dates: start: 20090925

REACTIONS (14)
  - SCOLIOSIS [None]
  - TENDONITIS [None]
  - BLADDER CANCER [None]
  - BURSITIS [None]
  - MIGRAINE [None]
  - GASTROOESOPHAGEAL REFLUX DISEASE [None]
  - LIGAMENT SPRAIN [None]
  - FALL [None]
  - CHRONIC OBSTRUCTIVE PULMONARY DISEASE [None]
  - FIBROMYALGIA [None]
  - INFLAMMATION [None]
  - FEMUR FRACTURE [None]
  - OSTEOPOROSIS [None]
  - HYPERTENSION [None]
